FAERS Safety Report 19001007 (Version 1)
Quarter: 2021Q1

REPORT INFORMATION
  Report Type: Spontaneous
  Country: US (occurrence: US)
  Receive Date: 20210311
  Receipt Date: 20210311
  Transmission Date: 20210420
  Serious: No
  Sender: FDA-Public Use
  Company Number: US-GLENMARK PHARMACEUTICALS-2020GMK047103

PATIENT

DRUGS (3)
  1. MUPIROCIN. [Suspect]
     Active Substance: MUPIROCIN
     Indication: RASH
  2. MUPIROCIN. [Suspect]
     Active Substance: MUPIROCIN
     Indication: SWELLING
  3. MUPIROCIN. [Suspect]
     Active Substance: MUPIROCIN
     Indication: ADVERSE DRUG REACTION
     Dosage: UNK, TID
     Route: 061
     Dates: start: 20200320, end: 20200323

REACTIONS (11)
  - Swelling [Recovering/Resolving]
  - Application site haemorrhage [Not Recovered/Not Resolved]
  - Erythema [Not Recovered/Not Resolved]
  - Bloody discharge [Not Recovered/Not Resolved]
  - Pain in extremity [Recovering/Resolving]
  - Inflammation [Not Recovered/Not Resolved]
  - Condition aggravated [Not Recovered/Not Resolved]
  - Application site irritation [Not Recovered/Not Resolved]
  - Purulent discharge [Not Recovered/Not Resolved]
  - Therapy cessation [Unknown]
  - Product use in unapproved indication [Unknown]

NARRATIVE: CASE EVENT DATE: 202003
